FAERS Safety Report 23584132 (Version 4)
Quarter: 2024Q1

REPORT INFORMATION
  Report Type: Spontaneous
  Country: JP (occurrence: JP)
  Receive Date: 20240301
  Receipt Date: 20240329
  Transmission Date: 20240409
  Serious: Yes (Hospitalization, Other)
  Sender: FDA-Public Use
  Company Number: JP-GENMAB-2024-00523

PATIENT
  Age: 7 Decade
  Sex: Male

DRUGS (2)
  1. EPKINLY [Suspect]
     Active Substance: EPCORITAMAB-BYSP
     Indication: Product used for unknown indication
     Dosage: UNK, THE FIRST ADMINISTRATION, THE SECOND ADMINISTRATION
     Route: 058
     Dates: start: 20240206, end: 202402
  2. EPKINLY [Suspect]
     Active Substance: EPCORITAMAB-BYSP
     Dosage: 48 MILLIGRAM, THE THIRD ADMINISTRATION, THE FOURTH ADMINISTRATION
     Route: 058
     Dates: start: 20240220, end: 20240227

REACTIONS (2)
  - Opportunistic infection [Not Recovered/Not Resolved]
  - Immune effector cell-associated neurotoxicity syndrome [Recovered/Resolved]

NARRATIVE: CASE EVENT DATE: 20240221
